FAERS Safety Report 22383595 (Version 1)
Quarter: 2023Q2

REPORT INFORMATION
  Report Type: Spontaneous
  Country: IT (occurrence: None)
  Receive Date: 20230530
  Receipt Date: 20230530
  Transmission Date: 20230721
  Serious: Yes (Hospitalization)
  Sender: FDA-Public Use
  Company Number: 2023A117571

PATIENT
  Age: 30 Year
  Sex: Male

DRUGS (2)
  1. QUETIAPINE FUMARATE [Suspect]
     Active Substance: QUETIAPINE FUMARATE
     Dosage: DOSAGE: 15 UNITS OF MEASURE: DOSAGE UNIT FREQUENCY OF ADMINISTRATION: TOTAL ROUTE OF ADMINISTRATI...
     Route: 048
     Dates: start: 20230509, end: 20230509
  2. EN [Suspect]
     Active Substance: DELORAZEPAM
     Dosage: FREQUENCY OF ADMINISTRATION: TOTAL VIA ADMINISTRATION: ORAL
     Route: 048
     Dates: start: 20230509, end: 20230509

REACTIONS (1)
  - Sopor [Recovering/Resolving]

NARRATIVE: CASE EVENT DATE: 20230509
